FAERS Safety Report 6474524-X (Version None)
Quarter: 2009Q4

REPORT INFORMATION
  Report Type: 
  Country: None (occurrence: None)
  Receive Date: 20091127
  Receipt Date: 20091028
  Transmission Date: 20100525
  Serious: Yes (Hospitalization)
  Sender: FDA-Public Use
  Company Number: WAES 0910GBR00097

PATIENT
  Age: 55 Year
  Sex: Female

DRUGS (11)
  1. JANUVIA [Suspect]
     Indication: TYPE 2 DIABETES MELLITUS
     Dosage: 100 MG/DAILY PO
     Route: 048
     Dates: start: 20080918, end: 20090428
  2. JANUVIA [Suspect]
     Indication: TYPE 2 DIABETES MELLITUS
     Dosage: 100 MG/DAILY PO
     Route: 048
     Dates: start: 20090508
  3. ASPIRIN [Concomitant]
  4. BUPRENORPHINE [Concomitant]
  5. CITALOPRAM HYDROBROMIDE [Concomitant]
  6. DIPYRIDAMOLE [Concomitant]
  7. FUROSEMIDE [Concomitant]
  8. ISOSORBIDE MONONITRATE [Concomitant]
  9. METFORMIN [Concomitant]
  10. OLANZAPINE [Concomitant]
  11. OXYBUTYNIN CHLORIDE [Concomitant]

REACTIONS (4)
  - BLOOD GLUCOSE INCREASED [None]
  - CALCIUM IONISED INCREASED [None]
  - CONDITION AGGRAVATED [None]
  - SLEEP APNOEA SYNDROME [None]
